FAERS Safety Report 6937527-4 (Version None)
Quarter: 2010Q3

REPORT INFORMATION
  Report Type: 
  Country: None (occurrence: None)
  Receive Date: 20100823
  Receipt Date: 20100823
  Transmission Date: 20110219
  Serious: Yes (Life-Threatening, Hospitalization)
  Sender: FDA-Public Use
  Company Number: None

PATIENT
  Age: 9 Year
  Sex: Female
  Weight: 45.44 kg

DRUGS (4)
  1. PEG-ASPARAGINASE 3750 UNITS/ M ML VIAL ENZON PHARMACEUTICAL [Suspect]
     Indication: ACUTE LYMPHOCYTIC LEUKAEMIA
     Dosage: 3600 UNITS ONCE IM
     Route: 030
     Dates: start: 20100721, end: 20100721
  2. CYTARABINE [Concomitant]
  3. VINCRISTINE [Concomitant]
  4. DEXAMETHASONE [Concomitant]

REACTIONS (1)
  - ACUTE HEPATIC FAILURE [None]
